FAERS Safety Report 9106587 (Version 1)
Quarter: 2013Q1

REPORT INFORMATION
  Report Type: Spontaneous
  Country: FR (occurrence: FR)
  Receive Date: 20130221
  Receipt Date: 20130221
  Transmission Date: 20140127
  Serious: Yes (Other)
  Sender: FDA-Public Use
  Company Number: PHHY2013FR017211

PATIENT
  Age: 54 Year
  Sex: Female

DRUGS (7)
  1. ZOMETA [Suspect]
     Indication: BREAST CANCER
     Dosage: UNK
     Route: 042
     Dates: start: 201110, end: 20111220
  2. ZOMETA [Suspect]
     Indication: BONE LESION
  3. AVASTIN [Suspect]
     Indication: NEOPLASM MALIGNANT
     Dosage: UNK
     Route: 042
     Dates: start: 20110802, end: 20111220
  4. AVASTIN [Suspect]
     Indication: METASTASES TO PERITONEUM
     Dosage: UNK
     Dates: start: 20120619, end: 20120828
  5. AROMASINE [Suspect]
     Dosage: UNK
     Route: 048
     Dates: start: 20120221
  6. PACLITAXEL [Concomitant]
     Indication: NEOPLASM MALIGNANT
     Dosage: UNK
     Dates: start: 20110719
  7. PACLITAXEL [Concomitant]
     Indication: METASTASES TO PERITONEUM

REACTIONS (1)
  - Osteonecrosis [Recovered/Resolved]
